FAERS Safety Report 10450551 (Version 2)
Quarter: 2015Q2

REPORT INFORMATION
  Report Type: Spontaneous
  Country: GB (occurrence: GB)
  Receive Date: 20140912
  Receipt Date: 20150512
  Transmission Date: 20150821
  Serious: Yes (Other)
  Sender: FDA-Public Use
  Company Number: PHHY2014GB112416

PATIENT
  Age: 34 Year
  Sex: Male

DRUGS (5)
  1. DIAZEPAM. [Concomitant]
     Active Substance: DIAZEPAM
     Dosage: 1 TABLET AS DIRECTED.
     Route: 048
     Dates: start: 20130208, end: 20140826
  2. LAMICTAL [Concomitant]
     Active Substance: LAMOTRIGINE
     Indication: PRODUCT USED FOR UNKNOWN INDICATION
     Dosage: 75 MG, QD
     Route: 048
     Dates: start: 20110511, end: 20140826
  3. DIAZEPAM. [Concomitant]
     Active Substance: DIAZEPAM
     Indication: PRODUCT USED FOR UNKNOWN INDICATION
     Dosage: 2 MG, (1 TABLET AS DIRECTED.)
     Route: 048
     Dates: start: 20130208, end: 20140826
  4. ITRACONAZOLE. [Suspect]
     Active Substance: ITRACONAZOLE
     Dosage: 200MG TWICE DAILY FOR 1 WEEK, REPEAT AFTER 3 WEEKS, REPEAT AGAIN AFTER 3 WEEKS.
     Route: 048
     Dates: start: 20130703, end: 20130831
  5. ITRACONAZOLE. [Suspect]
     Active Substance: ITRACONAZOLE
     Indication: ONYCHOMYCOSIS
     Dosage: 200 MG, BID (200MG TWICE DAILY FOR 1/52, REPEAT AFTER 3/52, REPEAT AGAIN AFTER 3/52)
     Route: 048
     Dates: start: 20130703, end: 20130831

REACTIONS (3)
  - Depression [Not Recovered/Not Resolved]
  - Bipolar I disorder [Not Recovered/Not Resolved]
  - Bipolar disorder [Not Recovered/Not Resolved]

NARRATIVE: CASE EVENT DATE: 20130708
